FAERS Safety Report 4449619-2 (Version None)
Quarter: 2004Q3

REPORT INFORMATION
  Report Type: 
  Country: None (occurrence: None)
  Receive Date: 20040913
  Receipt Date: 20040831
  Transmission Date: 20050211
  Serious: Yes (Hospitalization)
  Sender: FDA-Public Use
  Company Number: STA-AE-04-MTX-373

PATIENT
  Age: 75 Year
  Sex: Male

DRUGS (10)
  1. RHEUMATREX [Suspect]
     Indication: RHEUMATOID ARTHRITIS
     Dosage: 4 MG 1X PER 1 WK, ORAL
     Route: 048
     Dates: start: 20030513, end: 20030611
  2. RHEUMATREX [Suspect]
     Indication: RHEUMATOID ARTHRITIS
     Dosage: 4 MG 1X PER 1 WK, ORAL
     Route: 048
     Dates: start: 20040416, end: 20040723
  3. UNSPECIFIED NON-STEROIDAL ANTI-INFLAMMATORY AGENT [Concomitant]
  4. UNSPECIFIED ANTI-INFLAMMATORY AGENT [Concomitant]
  5. PREDNISOLONE [Concomitant]
  6. PANVITAN (VITAMINS NOS) [Concomitant]
  7. HALCION [Concomitant]
  8. ADOFEED (FLURBIPROFEN) [Concomitant]
  9. PREDNISOLONE [Concomitant]
  10. BUCILLAMINE [Concomitant]

REACTIONS (6)
  - BACK PAIN [None]
  - INTERSTITIAL LUNG DISEASE [None]
  - MALAISE [None]
  - PAIN IN EXTREMITY [None]
  - RASH ERYTHEMATOUS [None]
  - RHEUMATOID LUNG [None]
